APPROVED DRUG PRODUCT: ACETYLCYSTEINE
Active Ingredient: ACETYLCYSTEINE
Strength: 10%
Dosage Form/Route: SOLUTION;INHALATION, ORAL
Application: A204674 | Product #001 | TE Code: AN
Applicant: ALVOGEN INC
Approved: Feb 11, 2014 | RLD: No | RS: No | Type: RX